FAERS Safety Report 23247529 (Version 1)
Quarter: 2023Q4

REPORT INFORMATION
  Report Type: Spontaneous
  Country: US (occurrence: US)
  Receive Date: 20231130
  Receipt Date: 20231130
  Transmission Date: 20240110
  Serious: No
  Sender: FDA-Public Use
  Company Number: US-APELLIS PHARMACEUTICALS-APL-2023-002985

PATIENT
  Sex: Male

DRUGS (2)
  1. SYFOVRE [Suspect]
     Active Substance: PEGCETACOPLAN
     Indication: Dry age-related macular degeneration
     Dosage: 15 MILLIGRAM, EVERY 25 DAYS, OS
     Dates: start: 20230822
  2. SYFOVRE [Suspect]
     Active Substance: PEGCETACOPLAN
     Dosage: 15 MILLIGRAM, EVERY 25 DAYS, OD
     Dates: start: 20230822

REACTIONS (2)
  - Asthenopia [Not Recovered/Not Resolved]
  - Dizziness [Unknown]
